FAERS Safety Report 9668432 (Version 1)
Quarter: 2013Q4

REPORT INFORMATION
  Report Type: Spontaneous
  Country: US (occurrence: US)
  Receive Date: 20131105
  Receipt Date: 20131105
  Transmission Date: 20140711
  Serious: Yes (Other)
  Sender: FDA-Public Use
  Company Number: US-PFIZER INC-2013312539

PATIENT
  Age: 53 Year
  Sex: Female

DRUGS (3)
  1. ENBREL [Suspect]
     Indication: PSORIATIC ARTHROPATHY
     Dosage: 25 MG, 2 TIMES/WK
     Route: 065
     Dates: start: 20030101
  2. GABAPENTIN [Suspect]
     Indication: RASH PRURITIC
     Dosage: UNK
     Route: 065
  3. GABAPENTIN [Suspect]
     Indication: RASH PAPULAR

REACTIONS (16)
  - Haemorrhage [Recovered/Resolved]
  - Wolff-Parkinson-White syndrome [Not Recovered/Not Resolved]
  - Antiphospholipid antibodies positive [Not Recovered/Not Resolved]
  - Rash pruritic [Not Recovered/Not Resolved]
  - Rash papular [Not Recovered/Not Resolved]
  - Thinking abnormal [Not Recovered/Not Resolved]
  - Disturbance in attention [Not Recovered/Not Resolved]
  - Speech disorder [Not Recovered/Not Resolved]
  - Contusion [Not Recovered/Not Resolved]
  - Scab [Recovered/Resolved]
  - Scratch [Recovered/Resolved]
  - Skin haemorrhage [Recovered/Resolved]
  - Skin burning sensation [Recovered/Resolved]
  - Anticipatory anxiety [Not Recovered/Not Resolved]
  - Nervousness [Not Recovered/Not Resolved]
  - Exposure to radiation [Recovered/Resolved]
